FAERS Safety Report 6371929-2 (Version None)
Quarter: 2009Q3

REPORT INFORMATION
  Report Type: 
  Country: None (occurrence: None)
  Receive Date: 20090916
  Receipt Date: 20090916
  Transmission Date: 20100115
  Serious: Yes (Other)
  Sender: FDA-Public Use
  Company Number: None

PATIENT
  Sex: Male
  Weight: 63.6 kg

DRUGS (1)
  1. RISPERDAL [Suspect]
     Indication: DYSKINESIA
     Dosage: REGULAR NIGHTLY ORAL; HALF DOSE NIGHTLY ORAL
     Route: 048
     Dates: start: 20090801, end: 20090906

REACTIONS (11)
  - AGGRESSION [None]
  - ASTHENIA [None]
  - CONTUSION [None]
  - DROOLING [None]
  - DYSKINESIA [None]
  - FATIGUE [None]
  - HYPERHIDROSIS [None]
  - IRRITABILITY [None]
  - MUSCLE RIGIDITY [None]
  - MUSCULOSKELETAL STIFFNESS [None]
  - RASH MACULAR [None]
